FAERS Safety Report 20898406 (Version 1)
Quarter: 2022Q2

REPORT INFORMATION
  Report Type: Spontaneous
  Country: US (occurrence: US)
  Receive Date: 20220601
  Receipt Date: 20220601
  Transmission Date: 20220721
  Serious: Yes (Death, Hospitalization)
  Sender: FDA-Public Use
  Company Number: US-STRIDES ARCOLAB LIMITED-2022SP006231

PATIENT
  Age: 70 Year
  Sex: Male

DRUGS (3)
  1. PREDNISOLONE [Suspect]
     Active Substance: PREDNISOLONE
     Indication: Lung transplant
     Dosage: 5 MILLIGRAM, BID
     Route: 065
  2. AZATHIOPRINE [Suspect]
     Active Substance: AZATHIOPRINE
     Indication: Lung transplant
     Dosage: 50 MILLIGRAM, DAILY
     Route: 065
  3. BASILIXIMAB [Suspect]
     Active Substance: BASILIXIMAB
     Indication: Lung transplant
     Dosage: UNK
     Route: 065

REACTIONS (5)
  - Septic shock [Fatal]
  - Cellulitis [Not Recovered/Not Resolved]
  - Fungal infection [Not Recovered/Not Resolved]
  - Onychomycosis [Not Recovered/Not Resolved]
  - Off label use [Unknown]
